FAERS Safety Report 9381680 (Version 1)
Quarter: 2013Q3

REPORT INFORMATION
  Report Type: Spontaneous
  Country: JP (occurrence: JP)
  Receive Date: 20130703
  Receipt Date: 20130703
  Transmission Date: 20140515
  Serious: Yes (Hospitalization, Other)
  Sender: FDA-Public Use
  Company Number: JP-PFIZER INC-2013170271

PATIENT
  Age: 86 Year
  Sex: Male
  Weight: 63.9 kg

DRUGS (8)
  1. ANCARON [Suspect]
     Indication: ARRHYTHMIA
     Dosage: 100 MG, DAILY
     Route: 048
     Dates: start: 20130401
  2. BAYASPIRIN [Concomitant]
     Dosage: UNK
  3. PLAVIX [Concomitant]
     Dosage: UNK
  4. PARIET [Concomitant]
     Dosage: UNK
  5. AMLODIN [Concomitant]
     Dosage: UNK
  6. MICARDIS [Concomitant]
     Dosage: UNK
  7. CASODEX [Concomitant]
     Dosage: UNK
     Dates: start: 201011
  8. REMINYL [Concomitant]
     Dosage: UNK
     Dates: start: 201301

REACTIONS (2)
  - Interstitial lung disease [Recovering/Resolving]
  - Cardiac disorder [Unknown]
